FAERS Safety Report 4431036-2 (Version None)
Quarter: 2004Q3

REPORT INFORMATION
  Report Type: 
  Country: None (occurrence: None)
  Receive Date: 20040824
  Receipt Date: 20040514
  Transmission Date: 20050211
  Serious: No
  Sender: FDA-Public Use
  Company Number: US-BRISTOL-MYERS SQUIBB COMPANY-12587440

PATIENT

DRUGS (1)
  1. MEGACE [Suspect]
     Route: 048

REACTIONS (1)
  - ADVERSE EVENT [None]
